FAERS Safety Report 9321349 (Version 1)
Quarter: 2013Q2

REPORT INFORMATION
  Report Type: Spontaneous
  Country: US (occurrence: US)
  Receive Date: 20130531
  Receipt Date: 20130531
  Transmission Date: 20140414
  Serious: Yes (Other)
  Sender: FDA-Public Use
  Company Number: US-PFIZER INC-2013164422

PATIENT
  Age: 42 Year
  Sex: Female
  Weight: 68.03 kg

DRUGS (3)
  1. LYRICA [Suspect]
     Indication: HYPOAESTHESIA
     Dosage: UNK
     Dates: start: 201303
  2. LYRICA [Suspect]
     Indication: PARAESTHESIA
     Dosage: 75 MG, 3X/DAY
     Dates: start: 2013, end: 2013
  3. LYRICA [Suspect]
     Dosage: 75 MG, 2X/DAY
     Dates: start: 2013, end: 2013

REACTIONS (5)
  - Dizziness [Recovered/Resolved]
  - Activities of daily living impaired [Recovered/Resolved]
  - Impaired driving ability [Recovered/Resolved]
  - Gait disturbance [Recovered/Resolved]
  - Intentional drug misuse [Unknown]
